FAERS Safety Report 10079667 (Version 1)
Quarter: 2014Q2

REPORT INFORMATION
  Report Type: Spontaneous
  Country: US (occurrence: None)
  Receive Date: 20140414
  Receipt Date: 20140414
  Transmission Date: 20141212
  Serious: Yes (Life-Threatening, Hospitalization)
  Sender: FDA-Public Use
  Company Number: None

PATIENT
  Age: 38 Year
  Sex: Female
  Weight: 89.81 kg

DRUGS (3)
  1. HYDROCODONE/APAP [Suspect]
     Indication: EAR INFECTION
     Route: 048
     Dates: start: 20140207, end: 20140209
  2. HYDROCODONE/APAP [Suspect]
     Indication: ENDOMETRIOSIS
     Route: 048
     Dates: start: 20140207, end: 20140209
  3. HYDROCODONE/APAP [Suspect]
     Indication: DISEASE RECURRENCE
     Route: 048
     Dates: start: 20140207, end: 20140209

REACTIONS (8)
  - Wrong drug administered [None]
  - Chills [None]
  - Dizziness [None]
  - Cold sweat [None]
  - Abdominal pain [None]
  - Asthenia [None]
  - Blood glucose decreased [None]
  - Drug dispensing error [None]
